FAERS Safety Report 5052971-0 (Version None)
Quarter: 2006Q3

REPORT INFORMATION
  Report Type: 
  Country: None (occurrence: None)
  Receive Date: 20060712
  Receipt Date: 20060629
  Transmission Date: 20061208
  Serious: Yes (Death, Hospitalization)
  Sender: FDA-Public Use
  Company Number: 2006040636

PATIENT
  Age: 55 Year
  Sex: Female
  Weight: 85 kg

DRUGS (19)
  1. SUTENT [Suspect]
     Indication: RENAL CANCER METASTATIC
     Dosage: 50 MG (50 MG, 1 IN 1 D), ORAL
     Route: 048
     Dates: start: 20060118, end: 20060208
  2. CELLCEPT [Concomitant]
  3. PROGRAF [Concomitant]
  4. LASIX [Concomitant]
  5. ATENOLOL [Concomitant]
  6. GLYBURIDE [Concomitant]
  7. LEVOTHYROXINE SODIUM [Concomitant]
  8. ZAROXOLYN [Concomitant]
  9. PREDNISONE TAB [Concomitant]
  10. CARDURA [Concomitant]
  11. ZOLOFT [Concomitant]
  12. KEFLEX [Concomitant]
  13. PERCOCET [Concomitant]
  14. ACETAMINOPHEN [Concomitant]
  15. NEURONTIN [Concomitant]
  16. AMBIEN [Concomitant]
  17. FOSAMAX [Concomitant]
  18. MULTIVITAMIN [Concomitant]
  19. LORAZEPAM [Concomitant]

REACTIONS (4)
  - DIALYSIS [None]
  - HYPOGLYCAEMIA [None]
  - RENAL FAILURE [None]
  - SYNCOPE [None]
